FAERS Safety Report 13717511 (Version 1)
Quarter: 2017Q3

REPORT INFORMATION
  Report Type: Report from Study
  Country: CA (occurrence: CA)
  Receive Date: 20170705
  Receipt Date: 20170705
  Transmission Date: 20171127
  Serious: Yes (Other)
  Sender: FDA-Public Use
  Company Number: CA-JNJFOC-20170516618

PATIENT
  Sex: Male
  Weight: 77.11 kg

DRUGS (1)
  1. SIMPONI [Suspect]
     Active Substance: GOLIMUMAB
     Indication: PRODUCT USED FOR UNKNOWN INDICATION
     Route: 058
     Dates: start: 20170515

REACTIONS (3)
  - Haematochezia [Unknown]
  - Herpes zoster [Unknown]
  - Device use issue [Unknown]

NARRATIVE: CASE EVENT DATE: 2017
